FAERS Safety Report 14555228 (Version 2)
Quarter: 2018Q1

REPORT INFORMATION
  Report Type: Spontaneous
  Country: PT (occurrence: PT)
  Receive Date: 20180220
  Receipt Date: 20180226
  Transmission Date: 20180509
  Serious: Yes (Death, Hospitalization, Other)
  Sender: FDA-Public Use
  Company Number: PT-IMPAX LABORATORIES, INC-2018-IPXL-00451

PATIENT
  Age: 78 Year
  Sex: Female

DRUGS (8)
  1. TRAZODONE [Suspect]
     Active Substance: TRAZODONE HYDROCHLORIDE
     Indication: PRODUCT USED FOR UNKNOWN INDICATION
     Dosage: 150 MG, QD
     Route: 065
  2. HYDROCORTISONE. [Suspect]
     Active Substance: HYDROCORTISONE
     Dosage: 150 MG, DAILY (DIVIDED DOSE)
     Route: 048
  3. ACARBOSE. [Suspect]
     Active Substance: ACARBOSE
     Indication: TYPE 2 DIABETES MELLITUS
     Dosage: 50 MG, TID
     Route: 065
  4. PERINDOPRIL [Suspect]
     Active Substance: PERINDOPRIL
     Indication: HYPERTENSION
     Dosage: 4 MG, UNK
     Route: 065
  5. HYDROCORTISONE. [Suspect]
     Active Substance: HYDROCORTISONE
     Indication: PRODUCT USED FOR UNKNOWN INDICATION
     Dosage: 100 MG, BOLUS
     Route: 065
  6. AMIODARONE [Suspect]
     Active Substance: AMIODARONE
     Indication: ATRIAL FIBRILLATION
     Dosage: 200 MG, QD
     Route: 065
  7. SIMVASTATIN. [Suspect]
     Active Substance: SIMVASTATIN
     Indication: PRODUCT USED FOR UNKNOWN INDICATION
     Dosage: 20 MG, UNK
     Route: 065
  8. METFORMIN HYDROCHLORIDE ER [Suspect]
     Active Substance: METFORMIN HYDROCHLORIDE
     Indication: TYPE 2 DIABETES MELLITUS
     Dosage: 1000 MG, QD
     Route: 065

REACTIONS (22)
  - Cardiomegaly [Unknown]
  - Tachypnoea [Recovered/Resolved]
  - Adrenal insufficiency [Unknown]
  - Urinary tract infection [Recovered/Resolved]
  - Atrial fibrillation [Recovered/Resolved]
  - Thyroiditis [Recovered/Resolved]
  - Atelectasis [Unknown]
  - Hypotension [Recovered/Resolved]
  - Ischaemic stroke [Recovered/Resolved]
  - Hyponatraemia [Recovered/Resolved]
  - Death [Fatal]
  - Pulmonary congestion [Recovered/Resolved]
  - Cardiac failure congestive [Recovered/Resolved]
  - Hyperglycaemia [Recovered/Resolved]
  - Vascular dementia [Recovered/Resolved]
  - Cough [Recovered/Resolved]
  - Depressed level of consciousness [Recovered/Resolved]
  - Lung infection [Unknown]
  - Lumbar vertebral fracture [Recovered/Resolved]
  - Pleural effusion [Unknown]
  - Abdominal pain [Recovered/Resolved]
  - Sepsis [Recovered/Resolved]

NARRATIVE: CASE EVENT DATE: 2010
